FAERS Safety Report 5395734-9 (Version None)
Quarter: 2007Q3

REPORT INFORMATION
  Report Type: 
  Country: None (occurrence: None)
  Receive Date: 20070724
  Receipt Date: 20070718
  Transmission Date: 20080115
  Serious: Yes (Other)
  Sender: FDA-Public Use
  Company Number: JP-MERCK-0707USA03655

PATIENT
  Age: 68 Year
  Sex: Male

DRUGS (4)
  1. HYZAAR [Suspect]
     Indication: HYPERTENSION
     Route: 048
     Dates: start: 20070226
  2. ATELEC [Concomitant]
     Indication: HYPERTENSION
     Route: 048
     Dates: start: 20070226
  3. BEZAFIBRATE [Concomitant]
     Indication: BLOOD TRIGLYCERIDES INCREASED
     Route: 048
     Dates: start: 20070707
  4. ALLOPURINOL [Concomitant]
     Indication: BLOOD URIC ACID INCREASED
     Route: 048
     Dates: start: 20070707

REACTIONS (2)
  - MONOPLEGIA [None]
  - POSTURE ABNORMAL [None]
